FAERS Safety Report 7685995-5 (Version None)
Quarter: 2011Q3

REPORT INFORMATION
  Report Type: 
  Country: None (occurrence: None)
  Receive Date: 20110816
  Receipt Date: 20110812
  Transmission Date: 20111222
  Serious: Yes (Other)
  Sender: FDA-Public Use
  Company Number: US-PFIZER INC-2011186281

PATIENT
  Sex: Female
  Weight: 64 kg

DRUGS (2)
  1. DILANTIN [Suspect]
     Indication: GRAND MAL CONVULSION
     Dosage: 100 MG, 3X/DAY
     Route: 048
     Dates: start: 19790101
  2. FOSAMAX [Concomitant]
     Dosage: UNK

REACTIONS (3)
  - VITAMIN D DEFICIENCY [None]
  - GINGIVAL DISCOLOURATION [None]
  - CONVULSION [None]
